FAERS Safety Report 5044208-3 (Version None)
Quarter: 2006Q3

REPORT INFORMATION
  Report Type: 
  Country: None (occurrence: None)
  Receive Date: 20060706
  Receipt Date: 20060612
  Transmission Date: 20061208
  Serious: Yes (Other)
  Sender: FDA-Public Use
  Company Number: US-ROCHE-451792

PATIENT
  Age: 80 Year
  Sex: Female

DRUGS (5)
  1. KLONOPIN [Suspect]
     Indication: DRUG USE FOR UNKNOWN INDICATION
     Route: 048
     Dates: start: 20030615
  2. EVISTA [Concomitant]
  3. ZOCOR [Concomitant]
  4. EFFEXOR [Concomitant]
  5. XALATAN [Concomitant]
     Dosage: AT BEDTIME.

REACTIONS (1)
  - ANGLE CLOSURE GLAUCOMA [None]
